FAERS Safety Report 4333767-1 (Version None)
Quarter: 2004Q2

REPORT INFORMATION
  Report Type: 
  Country: None (occurrence: None)
  Receive Date: 20040407
  Receipt Date: 20040325
  Transmission Date: 20050107
  Serious: Yes (Death)
  Sender: FDA-Public Use
  Company Number: 200411020JP

PATIENT
  Age: 56 Year
  Sex: Male

DRUGS (2)
  1. TAXOTERE [Suspect]
     Indication: LUNG ADENOCARCINOMA
     Route: 041
  2. CISPLATIN [Suspect]
     Indication: LUNG ADENOCARCINOMA
     Route: 041

REACTIONS (4)
  - BRONCHIAL FISTULA [None]
  - HAEMOPTYSIS [None]
  - PULMONARY NECROSIS [None]
  - RESPIRATORY FAILURE [None]
